FAERS Safety Report 9184564 (Version 1)
Quarter: 2012Q4

REPORT INFORMATION
  Report Type: 
  Country: US (occurrence: US)
  Receive Date: 20121101
  Receipt Date: 20121101
  Transmission Date: 20130627
  Serious: Yes (Other)
  Sender: FDA-Public Use
  Company Number: US-PFIZER INC-2012271313

PATIENT
  Age: 60 Year
  Sex: Male
  Weight: 63.49 kg

DRUGS (4)
  1. CHANTIX [Suspect]
     Indication: SMOKING CESSATION THERAPY
     Dosage: 0.5 mg, 1x/day
     Route: 048
     Dates: end: 2010
  2. HYDROCODONE [Concomitant]
     Indication: CHRONIC PAIN
  3. LISINOPRIL [Concomitant]
     Indication: BLOOD PRESSURE HIGH
     Dosage: 10 mg, 1x/day
  4. CLONAZEPAM [Concomitant]
     Indication: ANXIETY
     Dosage: 1 mg, 2x/day

REACTIONS (2)
  - Tonsillitis [Unknown]
  - Dysphonia [Unknown]
